FAERS Safety Report 21788036 (Version 31)
Quarter: 2025Q4

REPORT INFORMATION
  Report Type: Spontaneous
  Country: CA (occurrence: CA)
  Receive Date: 20221228
  Receipt Date: 20251210
  Transmission Date: 20260117
  Serious: Yes (Other)
  Sender: BAUSCH AND LOMB
  Company Number: CA-BAUSCH-BL-2021-006694

PATIENT
  Age: 53 Year
  Sex: Male

DRUGS (226)
  1. TRIAMCINOLONE ACETONIDE [Suspect]
     Active Substance: TRIAMCINOLONE ACETONIDE
     Indication: Migraine
  2. TRIAMCINOLONE ACETONIDE [Suspect]
     Active Substance: TRIAMCINOLONE ACETONIDE
     Dosage: TRIAMCINOLONE ACETONIDE (3 ADMINISTRATIONS)
  3. TRIAMCINOLONE ACETONIDE [Suspect]
     Active Substance: TRIAMCINOLONE ACETONIDE
     Dosage: NOT SPECIFIED
  4. TRIAMCINOLONE ACETONIDE [Suspect]
     Active Substance: TRIAMCINOLONE ACETONIDE
     Dosage: NOT SPECIFIED
     Route: 014
  5. TRIAMCINOLONE ACETONIDE [Suspect]
     Active Substance: TRIAMCINOLONE ACETONIDE
     Dosage: ADMINISTERED 3 TIMES
  6. TRIAMCINOLONE ACETONIDE [Suspect]
     Active Substance: TRIAMCINOLONE ACETONIDE
     Dosage: TRIAMCINOLONE
  7. DICLOFENAC SODIUM [Suspect]
     Active Substance: DICLOFENAC SODIUM
     Indication: Migraine
  8. DICLOFENAC SODIUM [Suspect]
     Active Substance: DICLOFENAC SODIUM
     Dosage: DICLOFENAC SODIUM
  9. DICLOFENAC SODIUM [Suspect]
     Active Substance: DICLOFENAC SODIUM
     Dosage: DICLOFENAC SODIUM (3 ADMINISTRATIONS)
  10. TRAMADOL HYDROCHLORIDE [Suspect]
     Active Substance: TRAMADOL HYDROCHLORIDE
     Indication: Migraine
     Dosage: NOT SPECIFIED
  11. TRAMADOL HYDROCHLORIDE [Suspect]
     Active Substance: TRAMADOL HYDROCHLORIDE
  12. NEXIUM [Suspect]
     Active Substance: ESOMEPRAZOLE MAGNESIUM
     Indication: Product used for unknown indication
     Dosage: NOT SPECIFIED
     Route: 048
  13. AMITRIPTYLINE [Suspect]
     Active Substance: AMITRIPTYLINE
     Indication: Product used for unknown indication
  14. AMITRIPTYLINE [Suspect]
     Active Substance: AMITRIPTYLINE
     Dosage: AMITRIPTYLINE HYDROCHLORIDE
  15. AMITRIPTYLINE [Suspect]
     Active Substance: AMITRIPTYLINE
     Dosage: AMITRIPTYLINE HYDROCHLORIDE
  16. AMITRIPTYLINE [Suspect]
     Active Substance: AMITRIPTYLINE
     Dosage: AMITRIPTYLINE HYDROCHLORIDE
  17. AMITRIPTYLINE [Suspect]
     Active Substance: AMITRIPTYLINE
  18. BOTULINUM TOXIN TYPE A [Suspect]
     Active Substance: BOTULINUM TOXIN TYPE A
     Indication: Product used for unknown indication
     Dosage: (1 IN 1 TOTAL)
  19. BOTULINUM TOXIN TYPE A [Suspect]
     Active Substance: BOTULINUM TOXIN TYPE A
  20. BOTULINUM TOXIN TYPE A [Suspect]
     Active Substance: BOTULINUM TOXIN TYPE A
  21. BOTULINUM TOXIN TYPE A [Suspect]
     Active Substance: BOTULINUM TOXIN TYPE A
     Dosage: POWDER FOR SOLUTION
  22. BOTULINUM TOXIN TYPE A [Suspect]
     Active Substance: BOTULINUM TOXIN TYPE A
  23. BOTULINUM TOXIN TYPE A [Suspect]
     Active Substance: BOTULINUM TOXIN TYPE A
     Dosage: POWDER FOR SOLUTION, (1 IN 1 TOTAL)
  24. BOTULINUM TOXIN TYPE A [Suspect]
     Active Substance: BOTULINUM TOXIN TYPE A
  25. BOTULINUM TOXIN TYPE A [Suspect]
     Active Substance: BOTULINUM TOXIN TYPE A
     Dosage: POWDER FOR SOLUTION
  26. BOTULINUM TOXIN TYPE A [Suspect]
     Active Substance: BOTULINUM TOXIN TYPE A
     Dosage: POWDER FOR SOLUTION
     Route: 030
  27. BOTULINUM TOXIN TYPE A [Suspect]
     Active Substance: BOTULINUM TOXIN TYPE A
     Route: 030
  28. BOTULINUM TOXIN TYPE A [Suspect]
     Active Substance: BOTULINUM TOXIN TYPE A
  29. CELEBREX [Suspect]
     Active Substance: CELECOXIB
     Indication: Product used for unknown indication
     Dosage: ADMINISTERED - 5 TIMES
  30. CELEBREX [Suspect]
     Active Substance: CELECOXIB
     Indication: Arthritis
     Route: 030
  31. CELEBREX [Suspect]
     Active Substance: CELECOXIB
  32. CODEINE [Suspect]
     Active Substance: CODEINE
     Indication: Migraine
     Dosage: NOT SPECIFIED
     Route: 048
  33. CODEINE [Suspect]
     Active Substance: CODEINE
     Dosage: CODEINE PHOSPHATE
     Route: 048
  34. CODEINE [Suspect]
     Active Substance: CODEINE
  35. CODEINE [Suspect]
     Active Substance: CODEINE
     Dosage: CODEINE
  36. CODEINE [Suspect]
     Active Substance: CODEINE
  37. CODEINE [Suspect]
     Active Substance: CODEINE
     Dosage: CODEINE (30 ADMINISTRATION)
  38. CODEINE [Suspect]
     Active Substance: CODEINE
     Dosage: CODEINE CONTIN (EXTENDED RELEASE)
  39. CODEINE [Suspect]
     Active Substance: CODEINE
     Route: 048
  40. CODEINE [Suspect]
     Active Substance: CODEINE
     Dosage: NOT SPECIFIED
  41. DEMEROL [Suspect]
     Active Substance: MEPERIDINE HYDROCHLORIDE
     Indication: Product used for unknown indication
     Dosage: NOT SPECIFIED
  42. DEMEROL [Suspect]
     Active Substance: MEPERIDINE HYDROCHLORIDE
     Dosage: NOT SPECIFIED
  43. DEMEROL [Suspect]
     Active Substance: MEPERIDINE HYDROCHLORIDE
     Dosage: NOT SPECIFIED
  44. DULOXETINE [Suspect]
     Active Substance: DULOXETINE
     Indication: Migraine
  45. DULOXETINE [Suspect]
     Active Substance: DULOXETINE
     Dosage: DULOXETINE HYDROCHLORIDE
     Route: 048
  46. DULOXETINE [Suspect]
     Active Substance: DULOXETINE
     Dosage: DULOXETINE HYDROCHLORIDE
  47. DULOXETINE [Suspect]
     Active Substance: DULOXETINE
     Dosage: DULOXETINE HYDROCHLORIDE, DELAYED RELEASE
  48. DULOXETINE [Suspect]
     Active Substance: DULOXETINE
     Dosage: 600 MG
  49. DULOXETINE [Suspect]
     Active Substance: DULOXETINE
     Dosage: TEVA-DULOXETINE
  50. DULOXETINE [Suspect]
     Active Substance: DULOXETINE
     Dosage: DULOXETINE HYDROCHLORIDE
  51. DULOXETINE [Suspect]
     Active Substance: DULOXETINE
     Dosage: DULOXETINE HYDROCHLORIDE
  52. DULOXETINE [Suspect]
     Active Substance: DULOXETINE
     Dosage: DULOXETINE HYDROCHLORIDE (34 ADMINISTRATION) (60 MG)
  53. DULOXETINE [Suspect]
     Active Substance: DULOXETINE
  54. DULOXETINE [Suspect]
     Active Substance: DULOXETINE
  55. DULOXETINE [Suspect]
     Active Substance: DULOXETINE
  56. GABAPENTIN [Suspect]
     Active Substance: GABAPENTIN
     Indication: Product used for unknown indication
     Dosage: NOT SPECIFIED
  57. GABAPENTIN [Suspect]
     Active Substance: GABAPENTIN
     Dosage: NOT SPECIFIED
  58. HYDROMORPHONE [Suspect]
     Active Substance: HYDROMORPHONE
     Indication: Migraine
     Dosage: NOT SPECIFIED
  59. HYDROMORPHONE [Suspect]
     Active Substance: HYDROMORPHONE
  60. HYDROMORPHONE [Suspect]
     Active Substance: HYDROMORPHONE
     Dosage: HYDROMORPHONE HYDROCHLORIDE
  61. IBUPROFEN [Suspect]
     Active Substance: IBUPROFEN
     Indication: Product used for unknown indication
     Dosage: NOT SPECIFIED
  62. IBUPROFEN [Suspect]
     Active Substance: IBUPROFEN
     Dosage: IBUPROFEN SUSPENSION
  63. MAXALT [Suspect]
     Active Substance: RIZATRIPTAN BENZOATE
     Indication: Migraine
  64. NORTRIPTYLINE HYDROCHLORIDE [Suspect]
     Active Substance: NORTRIPTYLINE HYDROCHLORIDE
     Indication: Product used for unknown indication
  65. NORTRIPTYLINE HYDROCHLORIDE [Suspect]
     Active Substance: NORTRIPTYLINE HYDROCHLORIDE
  66. NORTRIPTYLINE HYDROCHLORIDE [Suspect]
     Active Substance: NORTRIPTYLINE HYDROCHLORIDE
     Route: 030
  67. NORTRIPTYLINE HYDROCHLORIDE [Suspect]
     Active Substance: NORTRIPTYLINE HYDROCHLORIDE
  68. PROPRANOLOL [Suspect]
     Active Substance: PROPRANOLOL HYDROCHLORIDE
     Indication: Migraine
  69. PROPRANOLOL [Suspect]
     Active Substance: PROPRANOLOL HYDROCHLORIDE
  70. PROPRANOLOL [Suspect]
     Active Substance: PROPRANOLOL HYDROCHLORIDE
     Dosage: PROPRANOLOL HYDROCHLORIDE
  71. PROPRANOLOL [Suspect]
     Active Substance: PROPRANOLOL HYDROCHLORIDE
     Dosage: PROPRANOLOL HYDROCHLORIDE
  72. PROPRANOLOL [Suspect]
     Active Substance: PROPRANOLOL HYDROCHLORIDE
     Dosage: NOT SPECIFIED
  73. TENORETIC [Suspect]
     Active Substance: ATENOLOL\CHLORTHALIDONE
     Indication: Product used for unknown indication
     Route: 048
  74. TENORETIC [Suspect]
     Active Substance: ATENOLOL\CHLORTHALIDONE
     Route: 048
  75. TENORETIC [Suspect]
     Active Substance: ATENOLOL\CHLORTHALIDONE
     Route: 048
  76. TENORETIC [Suspect]
     Active Substance: ATENOLOL\CHLORTHALIDONE
     Route: 048
  77. TENORETIC [Suspect]
     Active Substance: ATENOLOL\CHLORTHALIDONE
     Route: 048
  78. TENORETIC [Suspect]
     Active Substance: ATENOLOL\CHLORTHALIDONE
     Route: 048
  79. TENORETIC [Suspect]
     Active Substance: ATENOLOL\CHLORTHALIDONE
     Dosage: ONCE
  80. TENORETIC [Suspect]
     Active Substance: ATENOLOL\CHLORTHALIDONE
     Route: 048
  81. TENORETIC [Suspect]
     Active Substance: ATENOLOL\CHLORTHALIDONE
     Route: 048
  82. TENORETIC [Suspect]
     Active Substance: ATENOLOL\CHLORTHALIDONE
  83. TENORETIC [Suspect]
     Active Substance: ATENOLOL\CHLORTHALIDONE
  84. TENORETIC [Suspect]
     Active Substance: ATENOLOL\CHLORTHALIDONE
  85. TOPAMAX [Suspect]
     Active Substance: TOPIRAMATE
     Indication: Migraine
     Dosage: ADMINISTERED 2 TIMES
     Route: 048
  86. TOPAMAX [Suspect]
     Active Substance: TOPIRAMATE
  87. TOPAMAX [Suspect]
     Active Substance: TOPIRAMATE
     Dosage: ADMINISTERED 2 TIMES
  88. TOPAMAX [Suspect]
     Active Substance: TOPIRAMATE
     Dosage: NOT SPECIFIED
  89. TORADOL [Suspect]
     Active Substance: KETOROLAC TROMETHAMINE
     Indication: Product used for unknown indication
     Dosage: NOT SPECIFIED
  90. TORADOL [Suspect]
     Active Substance: KETOROLAC TROMETHAMINE
     Dosage: NOT SPECIFIED
  91. TORADOL [Suspect]
     Active Substance: KETOROLAC TROMETHAMINE
     Dosage: 3 ADMINISTRATION
  92. TORADOL [Suspect]
     Active Substance: KETOROLAC TROMETHAMINE
     Dosage: NOT SPECIFIED
  93. TYLENOL [Suspect]
     Active Substance: ACETAMINOPHEN
     Indication: Product used for unknown indication
     Dosage: NOT SPECIFIED
  94. TYLENOL [Suspect]
     Active Substance: ACETAMINOPHEN
     Dosage: NOT SPECIFIED
     Route: 048
  95. ENDOCET [Suspect]
     Active Substance: ACETAMINOPHEN\OXYCODONE HYDROCHLORIDE
     Indication: Migraine
  96. ENDOCET [Suspect]
     Active Substance: ACETAMINOPHEN\OXYCODONE HYDROCHLORIDE
     Route: 048
  97. ENDOCET [Suspect]
     Active Substance: ACETAMINOPHEN\OXYCODONE HYDROCHLORIDE
  98. TRAMADOL HYDROCHLORIDE [Suspect]
     Active Substance: TRAMADOL HYDROCHLORIDE
     Indication: Migraine
  99. TRAMADOL HYDROCHLORIDE [Suspect]
     Active Substance: TRAMADOL HYDROCHLORIDE
  100. DICLOFENAC [Suspect]
     Active Substance: DICLOFENAC
     Indication: Migraine
  101. DICLOFENAC [Suspect]
     Active Substance: DICLOFENAC
     Indication: Arthralgia
  102. NAPROXEN [Suspect]
     Active Substance: NAPROXEN
     Indication: Migraine
     Route: 048
  103. NAPROXEN [Suspect]
     Active Substance: NAPROXEN
  104. NAPROXEN [Suspect]
     Active Substance: NAPROXEN
     Route: 048
  105. NAPROXEN [Suspect]
     Active Substance: NAPROXEN
     Dosage: NOT SPECIFIED ( 3 ADMINISTRATIONS)
  106. TOPIRAMATE [Suspect]
     Active Substance: TOPIRAMATE
     Indication: Migraine
     Route: 048
  107. TOPIRAMATE [Suspect]
     Active Substance: TOPIRAMATE
  108. TOPIRAMATE [Suspect]
     Active Substance: TOPIRAMATE
  109. TOPIRAMATE [Suspect]
     Active Substance: TOPIRAMATE
     Dosage: NOT SPECIFIED (2 ADMINISTRATIONS)
  110. KETAMINE [Suspect]
     Active Substance: KETAMINE
     Indication: Product used for unknown indication
  111. KETAMINE [Suspect]
     Active Substance: KETAMINE
     Dosage: KETAMINE HYDROCHLORIDE
  112. KETAMINE [Suspect]
     Active Substance: KETAMINE
  113. KETAMINE [Suspect]
     Active Substance: KETAMINE
     Dosage: NOT SPECIFIED
  114. NORTRIPTYLINE [Suspect]
     Active Substance: NORTRIPTYLINE
     Indication: Product used for unknown indication
  115. DULOXETINE [Suspect]
     Active Substance: DULOXETINE
     Indication: Migraine
     Route: 065
  116. DULOXETINE [Suspect]
     Active Substance: DULOXETINE
     Route: 065
  117. DULOXETINE [Suspect]
     Active Substance: DULOXETINE
     Route: 065
  118. ACETAMINOPHEN [Suspect]
     Active Substance: ACETAMINOPHEN
     Indication: Migraine
  119. ACETAMINOPHEN [Suspect]
     Active Substance: ACETAMINOPHEN
     Dosage: 2 ADMINISTRATION
  120. ACETAMINOPHEN [Suspect]
     Active Substance: ACETAMINOPHEN
  121. ACETAMINOPHEN [Suspect]
     Active Substance: ACETAMINOPHEN
     Dosage: 4 ADMINISTRATION
  122. ACETAMINOPHEN [Suspect]
     Active Substance: ACETAMINOPHEN
     Route: 048
  123. ACETAMINOPHEN [Suspect]
     Active Substance: ACETAMINOPHEN
     Dosage: NOT SPECIFIED
  124. ACETAMINOPHEN [Suspect]
     Active Substance: ACETAMINOPHEN
     Route: 048
  125. ACETAMINOPHEN [Suspect]
     Active Substance: ACETAMINOPHEN
     Route: 048
  126. ACETAMINOPHEN\OXYCODONE HYDROCHLORIDE [Suspect]
     Active Substance: ACETAMINOPHEN\OXYCODONE HYDROCHLORIDE
     Indication: Product used for unknown indication
     Route: 065
  127. ACETAMINOPHEN\OXYCODONE HYDROCHLORIDE [Suspect]
     Active Substance: ACETAMINOPHEN\OXYCODONE HYDROCHLORIDE
     Route: 048
  128. ESOMEPRAZOLE MAGNESIUM\NAPROXEN [Suspect]
     Active Substance: ESOMEPRAZOLE MAGNESIUM\NAPROXEN
     Indication: Product used for unknown indication
     Route: 048
  129. ZOFRAN [Suspect]
     Active Substance: ONDANSETRON HYDROCHLORIDE
     Indication: Migraine
     Route: 065
  130. ZOFRAN [Suspect]
     Active Substance: ONDANSETRON HYDROCHLORIDE
     Dosage: NOT SPECIFIED
     Route: 065
  131. ACETAMINOPHEN\TRAMADOL [Suspect]
     Active Substance: ACETAMINOPHEN\TRAMADOL
     Indication: Product used for unknown indication
     Dosage: ACETAMINOPHEN/TRAMADOL (ADMINISTERED 2 TIMES)
  132. ACETAMINOPHEN\TRAMADOL [Suspect]
     Active Substance: ACETAMINOPHEN\TRAMADOL
     Dosage: ACETAMINOPHEN/TRAMADOL HYDROCHLORIDE
  133. ACETAMINOPHEN\TRAMADOL [Suspect]
     Active Substance: ACETAMINOPHEN\TRAMADOL
     Dosage: ACETAMINOPHEN/TRAMADOL HYDROCHLORIDE (ADMINISTERED 2 TIMES)
     Route: 048
  134. ACETAMINOPHEN\TRAMADOL [Suspect]
     Active Substance: ACETAMINOPHEN\TRAMADOL
     Dosage: ACETAMINOPHEN/TRAMADOL HYDROCHLORIDE (ADMINISTERED 2 TIMES)
  135. ACETAMINOPHEN\TRAMADOL [Suspect]
     Active Substance: ACETAMINOPHEN\TRAMADOL
     Dosage: ACETAMINOPHEN/TRAMADOL
  136. ACETAMINOPHEN\TRAMADOL [Suspect]
     Active Substance: ACETAMINOPHEN\TRAMADOL
     Dosage: ACETAMINOPHEN/TRAMADOL HYDROCHLORIDE (ADMINISTERED 4 TIMES)
  137. ALMOTRIPTAN [Suspect]
     Active Substance: ALMOTRIPTAN
     Indication: Product used for unknown indication
     Dosage: ALMOTRIPTAN MALATE
     Route: 065
  138. ALMOTRIPTAN [Suspect]
     Active Substance: ALMOTRIPTAN
     Dosage: ALMOTRIPTAN MALATE
     Route: 065
  139. ALMOTRIPTAN [Suspect]
     Active Substance: ALMOTRIPTAN
     Dosage: ALMOTRIPTAN MALATE
     Route: 065
  140. ALMOTRIPTAN [Suspect]
     Active Substance: ALMOTRIPTAN
     Dosage: ALMOTRIPTAN MALATE
     Route: 065
  141. AXERT [Suspect]
     Active Substance: ALMOTRIPTAN MALATE
     Indication: Product used for unknown indication
  142. MORPHINE [Suspect]
     Active Substance: MORPHINE
     Indication: Migraine
     Route: 065
  143. MORPHINE [Suspect]
     Active Substance: MORPHINE
     Route: 065
  144. MORPHINE [Suspect]
     Active Substance: MORPHINE
     Dosage: MORPHINE SULFATE
     Route: 065
  145. MORPHINE [Suspect]
     Active Substance: MORPHINE
     Route: 065
  146. ONDANSETRON HYDROCHLORIDE [Suspect]
     Active Substance: ONDANSETRON HYDROCHLORIDE
     Indication: Migraine
     Dosage: NOT SPECIFIED
  147. ONDANSETRON HYDROCHLORIDE [Suspect]
     Active Substance: ONDANSETRON HYDROCHLORIDE
     Dosage: ONDANSETRON HYDROCHLORIDE
  148. ONDANSETRON HYDROCHLORIDE [Suspect]
     Active Substance: ONDANSETRON HYDROCHLORIDE
     Dosage: ONDANSETRON HYDROCHLORIDE
  149. VIMOVO [Suspect]
     Active Substance: ESOMEPRAZOLE MAGNESIUM\NAPROXEN
     Indication: Product used for unknown indication
     Dosage: DELAYED AND IMMEDIATE RELEASE
     Route: 048
  150. VIMOVO [Suspect]
     Active Substance: ESOMEPRAZOLE MAGNESIUM\NAPROXEN
     Dosage: DELAYED AND IMMEDIATE RELEASE
     Route: 065
  151. EFFEXOR [Suspect]
     Active Substance: VENLAFAXINE HYDROCHLORIDE
     Indication: Migraine
     Dosage: CAPSULE, EXTENDED RELEASE
  152. EFFEXOR [Suspect]
     Active Substance: VENLAFAXINE HYDROCHLORIDE
     Dosage: EFFEXOR XR, CAPSULE DELAYED RELEASE
  153. ACETAMINOPHEN\CODEINE PHOSPHATE [Suspect]
     Active Substance: ACETAMINOPHEN\CODEINE PHOSPHATE
     Indication: Migraine
     Route: 065
  154. TRIAMCINOLONE ACETONIDE [Suspect]
     Active Substance: TRIAMCINOLONE ACETONIDE
     Indication: Migraine
  155. TRIAMCINOLONE ACETONIDE [Suspect]
     Active Substance: TRIAMCINOLONE ACETONIDE
  156. VENLAFAXINE HYDROCHLORIDE [Suspect]
     Active Substance: VENLAFAXINE HYDROCHLORIDE
     Indication: Migraine
     Route: 065
  157. VENLAFAXINE HYDROCHLORIDE [Suspect]
     Active Substance: VENLAFAXINE HYDROCHLORIDE
     Route: 065
  158. VENLAFAXINE HYDROCHLORIDE [Suspect]
     Active Substance: VENLAFAXINE HYDROCHLORIDE
     Dosage: VENLAFAXINE HYDROCHLORIDE (3 ADMINISTRATION)
     Route: 065
  159. DIHYDROERGOTAMINE MESYLATE [Suspect]
     Active Substance: DIHYDROERGOTAMINE MESYLATE
     Indication: Migraine
  160. DIHYDROERGOTAMINE MESYLATE [Suspect]
     Active Substance: DIHYDROERGOTAMINE MESYLATE
     Dosage: DIHYDROERGOTAMINE MESYLATE
     Route: 065
  161. DIHYDROERGOTAMINE MESYLATE [Suspect]
     Active Substance: DIHYDROERGOTAMINE MESYLATE
     Dosage: DIHYDROERGOTAMINE MESYLATE
     Route: 065
  162. RIZATRIPTAN BENZOATE [Suspect]
     Active Substance: RIZATRIPTAN BENZOATE
     Indication: Product used for unknown indication
     Route: 065
  163. ACETAMINOPHEN\CAFFEINE\CHLORPHENIRAMINE\PHENYLPROPANOLAMINE [Suspect]
     Active Substance: ACETAMINOPHEN\CAFFEINE\CHLORPHENIRAMINE\PHENYLPROPANOLAMINE
     Indication: Product used for unknown indication
  164. BOTOX [Suspect]
     Active Substance: ONABOTULINUMTOXINA
     Indication: Product used for unknown indication
     Dosage: 47 ADMINISTRATION (200 MG)
  165. BOTOX [Suspect]
     Active Substance: ONABOTULINUMTOXINA
     Dosage: POWDER FOR SOLUTION INTRAMUSCULAR (200 MG)
     Route: 030
  166. BOTOX [Suspect]
     Active Substance: ONABOTULINUMTOXINA
     Dosage: POWDER FOR SOLUTION (ADMINISTERED - 2 TIMES)
     Route: 030
  167. BOTOX [Suspect]
     Active Substance: ONABOTULINUMTOXINA
     Dosage: ADMINISTERED - 3 TIMES (1 IN 1 D)
  168. BOTOX [Suspect]
     Active Substance: ONABOTULINUMTOXINA
  169. BOTOX [Suspect]
     Active Substance: ONABOTULINUMTOXINA
     Dosage: ADMINISTERED - 2 TIMES (200 MG)
     Route: 030
  170. BOTOX [Suspect]
     Active Substance: ONABOTULINUMTOXINA
     Dosage: ADMINISTRATIONS - 140 (200 MG)
  171. BOTOX [Suspect]
     Active Substance: ONABOTULINUMTOXINA
     Dosage: ADMINISTERED- 44 TIMES (200 MG)
  172. BOTOX [Suspect]
     Active Substance: ONABOTULINUMTOXINA
     Dosage: ADMINISTERED- 6 TIMES
  173. BOTOX [Suspect]
     Active Substance: ONABOTULINUMTOXINA
  174. BOTOX [Suspect]
     Active Substance: ONABOTULINUMTOXINA
     Dosage: ADMINISTRATIONS - 3
  175. BOTOX [Suspect]
     Active Substance: ONABOTULINUMTOXINA
     Dosage: ADMINISTRATIONS - 3 (1 DOSAGE FORMS)
  176. BOTOX [Suspect]
     Active Substance: ONABOTULINUMTOXINA
     Route: 030
  177. BOTOX [Suspect]
     Active Substance: ONABOTULINUMTOXINA
     Route: 030
  178. BOTOX [Suspect]
     Active Substance: ONABOTULINUMTOXINA
     Route: 030
  179. ACETAMINOPHEN\CHLORPHENIRAMINE\CODEINE [Suspect]
     Active Substance: ACETAMINOPHEN\CHLORPHENIRAMINE\CODEINE
     Indication: Product used for unknown indication
  180. DICLOFENAC DIETHYLAMINE [Suspect]
     Active Substance: DICLOFENAC DIETHYLAMINE
     Indication: Migraine
  181. ATENOLOL\CHLORTHALIDONE [Suspect]
     Active Substance: ATENOLOL\CHLORTHALIDONE
     Indication: Product used for unknown indication
  182. ELAVIL [Suspect]
     Active Substance: AMITRIPTYLINE HYDROCHLORIDE
     Indication: Product used for unknown indication
  183. KETOROLAC [Suspect]
     Active Substance: KETOROLAC TROMETHAMINE
     Indication: Product used for unknown indication
  184. KETOROLAC [Suspect]
     Active Substance: KETOROLAC TROMETHAMINE
     Indication: Migraine
  185. DIHYDROERGOTAMINE [Suspect]
     Active Substance: DIHYDROERGOTAMINE
     Indication: Migraine
  186. DIHYDROERGOTAMINE [Suspect]
     Active Substance: DIHYDROERGOTAMINE
  187. DICLOFENAC POTASSIUM [Suspect]
     Active Substance: DICLOFENAC POTASSIUM
     Indication: Migraine
  188. DICLOFENAC DIETHYLAMINE [Suspect]
     Active Substance: DICLOFENAC DIETHYLAMINE
     Indication: Migraine
  189. CELECOXIB [Suspect]
     Active Substance: CELECOXIB
     Indication: Arthritis
  190. OXYCODONE HYDROCHLORIDE [Suspect]
     Active Substance: OXYCODONE HYDROCHLORIDE
     Indication: Migraine
     Route: 048
  191. OXYCODONE HYDROCHLORIDE [Suspect]
     Active Substance: OXYCODONE HYDROCHLORIDE
     Dosage: NOT SPECIFIED
  192. ADVIL [Suspect]
     Active Substance: IBUPROFEN
     Indication: Product used for unknown indication
  193. ADVIL [Suspect]
     Active Substance: IBUPROFEN
     Dosage: NIGHTTIME LIQUIGELS
  194. ADVIL [Suspect]
     Active Substance: IBUPROFEN
     Dosage: NOT SPECIFIED
  195. ADVIL [Suspect]
     Active Substance: IBUPROFEN
     Dosage: ADVIL CAPLETS, 2 ADMINISTRATIONS
  196. ESOMEPRAZOLE MAGNESIUM [Suspect]
     Active Substance: ESOMEPRAZOLE MAGNESIUM
     Indication: Product used for unknown indication
     Dosage: ESOMEPRAZOLE MAGNESIUM TRIHYDRATE (17 ADMINISTRATION)
     Route: 048
  197. ESOMEPRAZOLE MAGNESIUM [Suspect]
     Active Substance: ESOMEPRAZOLE MAGNESIUM
     Dosage: ESOMEPRAZOLE
     Route: 048
  198. ESOMEPRAZOLE MAGNESIUM [Suspect]
     Active Substance: ESOMEPRAZOLE MAGNESIUM
     Dosage: ) ESOMEPRAZOLE MAGNESIUM TRIHYDRATE
     Route: 048
  199. ESOMEPRAZOLE MAGNESIUM [Suspect]
     Active Substance: ESOMEPRAZOLE MAGNESIUM
     Dosage: ESOMEPRAZOLE MAGNESIUM TRIHYDRATE (31 ADMINISTRATION)
     Route: 048
  200. ESOMEPRAZOLE MAGNESIUM [Suspect]
     Active Substance: ESOMEPRAZOLE MAGNESIUM
     Dosage: ESOMEPRAZOLE MAGNESIUM TRIHYDRATE (31 ADMINISTRATION)
     Route: 048
  201. ESOMEPRAZOLE MAGNESIUM [Suspect]
     Active Substance: ESOMEPRAZOLE MAGNESIUM
     Dosage: NOT SPECIFIED
  202. ESOMEPRAZOLE MAGNESIUM [Suspect]
     Active Substance: ESOMEPRAZOLE MAGNESIUM
     Dosage: ESOMEPRAZOLE SODIUM TRIHYDRATE
     Route: 048
  203. ESOMEPRAZOLE MAGNESIUM [Suspect]
     Active Substance: ESOMEPRAZOLE MAGNESIUM
     Dosage: ESOMEPRAZOLE MAGNESIUM TRIHYDRATE (49ADMINISTRATION)
  204. ESOMEPRAZOLE MAGNESIUM [Suspect]
     Active Substance: ESOMEPRAZOLE MAGNESIUM
     Dosage: ESOMEPRAZOLE (NOT SPECIFIED)
  205. ESOMEPRAZOLE MAGNESIUM [Suspect]
     Active Substance: ESOMEPRAZOLE MAGNESIUM
     Dosage: ESOMEPRAZOLE (NOT SPECIFIED)
  206. DICLOFENAC DIETHYLAMINE [Suspect]
     Active Substance: DICLOFENAC DIETHYLAMINE
     Indication: Migraine
  207. IODINE [Suspect]
     Active Substance: IODINE
     Indication: Migraine
  208. PANADOL [Suspect]
     Active Substance: ACETAMINOPHEN
     Indication: Migraine
  209. ESOMEPRAZOLE MAGNESIUM\NAPROXEN [Suspect]
     Active Substance: ESOMEPRAZOLE MAGNESIUM\NAPROXEN
     Indication: Product used for unknown indication
     Route: 048
  210. ESOMEPRAZOLE [Suspect]
     Active Substance: ESOMEPRAZOLE
     Indication: Product used for unknown indication
     Route: 048
  211. ESOMEPRAZOLE [Suspect]
     Active Substance: ESOMEPRAZOLE
  212. ESOMEPRAZOLE [Suspect]
     Active Substance: ESOMEPRAZOLE
  213. ESOMEPRAZOLE [Suspect]
     Active Substance: ESOMEPRAZOLE
  214. DIPHENHYDRAMINE HYDROCHLORIDE\IBUPROFEN [Suspect]
     Active Substance: DIPHENHYDRAMINE HYDROCHLORIDE\IBUPROFEN
     Indication: Product used for unknown indication
  215. VENLAFAXINE HYDROCHLORIDE [Suspect]
     Active Substance: VENLAFAXINE HYDROCHLORIDE
     Indication: Migraine
  216. VENLAFAXINE HYDROCHLORIDE [Suspect]
     Active Substance: VENLAFAXINE HYDROCHLORIDE
  217. TOPIRAMATE [Suspect]
     Active Substance: TOPIRAMATE
     Indication: Migraine
     Route: 048
  218. ESOMEPRAZOLE MAGNESIUM [Suspect]
     Active Substance: ESOMEPRAZOLE MAGNESIUM
     Indication: Product used for unknown indication
     Route: 048
  219. ESOMEPRAZOLE MAGNESIUM [Suspect]
     Active Substance: ESOMEPRAZOLE MAGNESIUM
     Route: 048
  220. ESOMEPRAZOLE MAGNESIUM [Suspect]
     Active Substance: ESOMEPRAZOLE MAGNESIUM
     Route: 048
  221. ONDANSETRON [Suspect]
     Active Substance: ONDANSETRON
     Indication: Migraine
     Route: 048
  222. TRIACETIN [Suspect]
     Active Substance: TRIACETIN
     Indication: Migraine
  223. CHLORPHENIRAMINE MALEATE [Suspect]
     Active Substance: CHLORPHENIRAMINE MALEATE
     Indication: Migraine
  224. CHLORPHENIRAMINE MALEATE [Suspect]
     Active Substance: CHLORPHENIRAMINE MALEATE
     Indication: Product used for unknown indication
  225. CHLORPHENIRAMINE MALEATE [Suspect]
     Active Substance: CHLORPHENIRAMINE MALEATE
  226. CHLORPHENIRAMINE MALEATE [Suspect]
     Active Substance: CHLORPHENIRAMINE MALEATE

REACTIONS (9)
  - Nephrolithiasis [Unknown]
  - Sedation [Unknown]
  - Nightmare [Unknown]
  - Hyperhidrosis [Unknown]
  - Nausea [Unknown]
  - Drug ineffective [Unknown]
  - Product use in unapproved indication [Unknown]
  - Off label use [Unknown]
  - Product used for unknown indication [Unknown]
